FAERS Safety Report 5329797-3 (Version None)
Quarter: 2007Q2

REPORT INFORMATION
  Report Type: 
  Country: None (occurrence: None)
  Receive Date: 20070517
  Receipt Date: 20070517
  Transmission Date: 20071010
  Serious: Yes (Other)
  Sender: FDA-Public Use
  Company Number: None

PATIENT
  Age: 62 Year
  Sex: Male
  Weight: 73.4827 kg

DRUGS (2)
  1. LEVAQUIN [Suspect]
     Indication: GASTROINTESTINAL INFECTION
     Dosage: 500MG 2 / DAY PO
     Route: 048
     Dates: start: 20070309, end: 20070313
  2. CIPROFLOXACIN [Suspect]
     Indication: GASTROINTESTINAL INFECTION
     Dosage: 500MG 2/DAY PO
     Route: 048
     Dates: start: 20070510, end: 20070516

REACTIONS (10)
  - FATIGUE [None]
  - IMPAIRED WORK ABILITY [None]
  - LETHARGY [None]
  - LIGAMENT DISORDER [None]
  - LIGAMENT RUPTURE [None]
  - MENTAL IMPAIRMENT [None]
  - PARAESTHESIA [None]
  - SOMNOLENCE [None]
  - TENDON PAIN [None]
  - TINNITUS [None]
